FAERS Safety Report 16027615 (Version 8)
Quarter: 2021Q4

REPORT INFORMATION
  Report Type: Report from Study
  Country: JP (occurrence: JP)
  Receive Date: 20190304
  Receipt Date: 20211206
  Transmission Date: 20220303
  Serious: Yes (Hospitalization, Other)
  Sender: FDA-Public Use
  Company Number: JP-GLAXOSMITHKLINE-JP2017JPN198629

PATIENT
  Sex: Female

DRUGS (25)
  1. DOLUTEGRAVIR [Suspect]
     Active Substance: DOLUTEGRAVIR
     Indication: HIV infection
     Dosage: 50 MG, 1D
     Route: 048
     Dates: start: 20161112
  2. EPZICOM [Suspect]
     Active Substance: ABACAVIR SULFATE\LAMIVUDINE
     Indication: HIV infection
     Dosage: 1 DF, 1D
     Route: 048
     Dates: start: 20161226, end: 20180820
  3. TRUVADA [Suspect]
     Active Substance: EMTRICITABINE\TENOFOVIR DISOPROXIL FUMARATE
     Indication: HIV infection
     Dosage: 1 DF, 1D
     Route: 048
     Dates: start: 20161112, end: 20161213
  4. EDURANT [Suspect]
     Active Substance: RILPIVIRINE HYDROCHLORIDE
     Indication: HIV infection
     Dosage: 25 MG, 1D
     Route: 048
     Dates: start: 20161214, end: 20161225
  5. SULFAMETHOXAZOLE\TRIMETHOPRIM [Suspect]
     Active Substance: SULFAMETHOXAZOLE\TRIMETHOPRIM
     Indication: Antifungal prophylaxis
     Dosage: 1 DF, QD
     Route: 048
     Dates: start: 20161111, end: 20161225
  6. AMBISOME [Suspect]
     Active Substance: AMPHOTERICIN B
     Indication: Histoplasmosis disseminated
     Dosage: 150 MG, QD
     Route: 065
     Dates: start: 20161121, end: 20161205
  7. AMBISOME [Suspect]
     Active Substance: AMPHOTERICIN B
     Dosage: UNK
     Route: 065
     Dates: start: 20170704, end: 20170717
  8. AZITHROMYCIN DIHYDRATE [Concomitant]
     Active Substance: AZITHROMYCIN DIHYDRATE
     Indication: Opportunistic infection prophylaxis
     Dosage: 1200 MG, QD
     Dates: start: 20161125, end: 20161227
  9. LEVOTHYROXINE SODIUM [Concomitant]
     Active Substance: LEVOTHYROXINE SODIUM
     Indication: Hypothyroidism
     Dosage: 50 ?G, QD
  10. VALSARTAN [Concomitant]
     Active Substance: VALSARTAN
     Indication: Hypertension
     Dosage: UNK
     Dates: start: 20170401
  11. FLUCONAZOLE [Concomitant]
     Active Substance: FLUCONAZOLE
     Indication: Oral candidiasis
     Dosage: 100 MG, BID
     Dates: start: 20161111, end: 20161119
  12. PENTAMIDINE [Concomitant]
     Active Substance: PENTAMIDINE
     Indication: Antifungal prophylaxis
     Dosage: 300 MG, UNK
     Dates: start: 20161226, end: 20161226
  13. VICCLOX INTRAVENOUS [Concomitant]
     Indication: Herpes zoster disseminated
     Dosage: 450 MG, QD
     Dates: start: 20161111, end: 20161118
  14. DIOVAN [Concomitant]
     Active Substance: VALSARTAN
     Indication: Hypertension
     Dosage: 160 MG, QD
     Dates: start: 20170207, end: 20170708
  15. BISONO TAPE [Concomitant]
     Indication: Hypertension
     Dosage: 4 MG, PRN
     Dates: start: 20170207, end: 20190401
  16. ADALAT-CR TABLET [Concomitant]
     Indication: Hypertension
     Dosage: 10 MG, QD
     Dates: start: 20170307
  17. ALLELOCK [Concomitant]
     Active Substance: OLOPATADINE HYDROCHLORIDE
     Indication: Urticaria chronic
     Dosage: 10 MG, BID
     Dates: start: 20170207, end: 20181016
  18. RESTAMIN KOWA CREAM 1% [Concomitant]
     Indication: Urticaria chronic
     Dosage: UNK, BID
     Dates: start: 20160207
  19. PURSENNID [Concomitant]
     Indication: Prophylaxis
     Dosage: UNK
     Dates: start: 20180313
  20. LEXAPRO [Concomitant]
     Active Substance: ESCITALOPRAM OXALATE
     Dosage: UNK
  21. NEXIUM [Concomitant]
     Active Substance: ESOMEPRAZOLE MAGNESIUM
     Indication: Prophylaxis
     Dosage: UNK
     Dates: start: 20170829, end: 20180817
  22. DESCOVY [Concomitant]
     Active Substance: EMTRICITABINE\TENOFOVIR ALAFENAMIDE FUMARATE
     Indication: HIV infection
     Dosage: 1 DF, 1D
     Dates: start: 20180821
  23. XYZAL [Concomitant]
     Active Substance: LEVOCETIRIZINE DIHYDROCHLORIDE
     Dosage: UNK
     Dates: start: 20181017
  24. GASTER [Concomitant]
     Active Substance: FAMOTIDINE
     Indication: Prophylaxis
     Dosage: UNK
     Dates: start: 20180821
  25. METGLUCO [Concomitant]
     Active Substance: METFORMIN HYDROCHLORIDE
     Indication: Hypothyroidism
     Dosage: UNK
     Dates: start: 20191126

REACTIONS (7)
  - Renal tubular disorder [Recovering/Resolving]
  - Cytopenia [Recovering/Resolving]
  - Immune reconstitution inflammatory syndrome [Recovering/Resolving]
  - Histoplasmosis [Recovering/Resolving]
  - Abdominal discomfort [Recovered/Resolved]
  - Arthralgia [Recovering/Resolving]
  - Wound [Recovered/Resolved]

NARRATIVE: CASE EVENT DATE: 20161205
